FAERS Safety Report 24667699 (Version 4)
Quarter: 2025Q1

REPORT INFORMATION
  Report Type: Report from Study
  Country: US (occurrence: US)
  Receive Date: 20241126
  Receipt Date: 20250314
  Transmission Date: 20250408
  Serious: Yes (Other)
  Sender: ACADIA PHARMACEUTICALS
  Company Number: US-ACADIA PHARMACEUTICALS INC.-ACA-2024-PIM-007195

PATIENT
  Sex: Male

DRUGS (8)
  1. NUPLAZID [Suspect]
     Active Substance: PIMAVANSERIN TARTRATE
     Indication: Parkinson^s disease psychosis
     Dosage: 34 MILLIGRAM, QD
     Route: 048
     Dates: start: 20241025
  2. AMLODIPINE [Concomitant]
     Active Substance: AMLODIPINE BESYLATE
  3. CARBIDOPA\LEVODOPA [Concomitant]
     Active Substance: CARBIDOPA\LEVODOPA
  4. DOCUSATE [Concomitant]
     Active Substance: DOCUSATE
  5. DONEPEZIL [Concomitant]
     Active Substance: DONEPEZIL
  6. LEXAPRO [Concomitant]
     Active Substance: ESCITALOPRAM OXALATE
  7. PANTOPRAZOLE [Concomitant]
     Active Substance: PANTOPRAZOLE
  8. QUETIAPINE [Concomitant]
     Active Substance: QUETIAPINE

REACTIONS (12)
  - Suicidal ideation [Unknown]
  - Parkinson^s disease [Unknown]
  - Hallucination [Not Recovered/Not Resolved]
  - Hallucinations, mixed [Not Recovered/Not Resolved]
  - General physical health deterioration [Unknown]
  - Cognitive disorder [Unknown]
  - Weight decreased [Unknown]
  - Speech disorder [Not Recovered/Not Resolved]
  - Enuresis [Unknown]
  - Insomnia [Unknown]
  - Drug ineffective [Unknown]
  - Fall [Not Recovered/Not Resolved]
